FAERS Safety Report 5083579-9 (Version None)
Quarter: 2006Q3

REPORT INFORMATION
  Report Type: 
  Country: None (occurrence: None)
  Receive Date: 20060818
  Receipt Date: 20060816
  Transmission Date: 20061208
  Serious: Yes (Hospitalization)
  Sender: FDA-Public Use
  Company Number: US-GLAXOSMITHKLINE-A0616994A

PATIENT
  Age: 83 Year
  Sex: Male

DRUGS (1)
  1. WELLBUTRIN [Suspect]
     Indication: DEPRESSION
     Route: 048

REACTIONS (3)
  - ADVERSE DRUG REACTION [None]
  - AGGRESSION [None]
  - MENTAL DISORDER [None]
